FAERS Safety Report 18450309 (Version 2)
Quarter: 2021Q1

REPORT INFORMATION
  Report Type: Report from Study
  Country: None (occurrence: US)
  Receive Date: 20201102
  Receipt Date: 20210126
  Transmission Date: 20210419
  Serious: Yes (Death)
  Sender: FDA-Public Use
  Company Number: US-INSMED, INC.-US-INS-20-00349

PATIENT
  Age: 63 Year
  Sex: Male

DRUGS (2)
  1. ARIKAYCE [Suspect]
     Active Substance: AMIKACIN
     Indication: MYCOBACTERIAL INFECTION
     Route: 055
     Dates: start: 20200212, end: 2020
  2. ARIKAYCE [Suspect]
     Active Substance: AMIKACIN
     Route: 055
     Dates: start: 2020, end: 202010

REACTIONS (14)
  - Dyspnoea [Recovered/Resolved]
  - Throat irritation [Recovered/Resolved]
  - Diarrhoea [Not Recovered/Not Resolved]
  - Decreased appetite [Unknown]
  - Nausea [Not Recovered/Not Resolved]
  - Cough [Unknown]
  - Dyspnoea [Not Recovered/Not Resolved]
  - Product dose omission issue [Unknown]
  - Insomnia [Not Recovered/Not Resolved]
  - Death [Fatal]
  - Pain [Not Recovered/Not Resolved]
  - Vomiting [Unknown]
  - Headache [Unknown]
  - Fatigue [Not Recovered/Not Resolved]

NARRATIVE: CASE EVENT DATE: 2020
